FAERS Safety Report 11492428 (Version 1)
Quarter: 2015Q3

REPORT INFORMATION
  Report Type: Spontaneous
  Country: US (occurrence: US)
  Receive Date: 20150910
  Receipt Date: 20150910
  Transmission Date: 20151125
  Serious: No
  Sender: FDA-Public Use
  Company Number: US-TAKEDA-2015TUS004961

PATIENT
  Sex: Male

DRUGS (4)
  1. VICTOZA [Suspect]
     Active Substance: LIRAGLUTIDE
  2. CANDESARTAN [Suspect]
     Active Substance: CANDESARTAN
  3. METFORMIN [Suspect]
     Active Substance: METFORMIN HYDROCHLORIDE
  4. ACTOS [Suspect]
     Active Substance: PIOGLITAZONE HYDROCHLORIDE
     Indication: PRODUCT USED FOR UNKNOWN INDICATION
     Dosage: UNK
     Route: 065
     Dates: start: 1992

REACTIONS (1)
  - Hepatic enzyme increased [Recovered/Resolved]
